FAERS Safety Report 5418820-3 (Version None)
Quarter: 2007Q3

REPORT INFORMATION
  Report Type: 
  Country: None (occurrence: None)
  Receive Date: 20070718
  Receipt Date: 20060710
  Transmission Date: 20080115
  Serious: Yes (Death)
  Sender: FDA-Public Use
  Company Number: 2006088133

PATIENT
  Age: 62 Year
  Sex: Male
  Weight: 113.3993 kg

DRUGS (2)
  1. CELEBREX [Suspect]
     Indication: ARTHRITIS
     Dosage: 200MG - 400MG (200 MG, 1 - 2 PER DAY)
     Dates: start: 19980101, end: 20010101
  2. VIOXX [Concomitant]

REACTIONS (1)
  - CEREBRAL HAEMORRHAGE [None]
